FAERS Safety Report 23231162 (Version 1)
Quarter: 2023Q4

REPORT INFORMATION
  Report Type: Report from Study
  Country: US (occurrence: US)
  Receive Date: 20231127
  Receipt Date: 20231127
  Transmission Date: 20240109
  Serious: Yes (Hospitalization)
  Sender: FDA-Public Use
  Company Number: US-GILEAD-2023-0652155

PATIENT
  Sex: Male

DRUGS (2)
  1. AZTREONAM LYSINE [Suspect]
     Active Substance: AZTREONAM LYSINE
     Indication: Pseudomonas infection
     Dosage: INHALE 1 ML (75 MG TOTAL) VIA ALTERA NEBULIZER 3 TIMES A DAY FOR 28 DAYS EVERY OTHER MONTH
     Route: 055
     Dates: start: 20220416
  2. AZTREONAM LYSINE [Suspect]
     Active Substance: AZTREONAM LYSINE
     Indication: Bacterial disease carrier

REACTIONS (2)
  - Surgery [Unknown]
  - Off label use [Not Recovered/Not Resolved]
